FAERS Safety Report 24334958 (Version 1)
Quarter: 2024Q3

REPORT INFORMATION
  Report Type: Report from Study
  Country: US (occurrence: US)
  Receive Date: 20240918
  Receipt Date: 20240918
  Transmission Date: 20241016
  Serious: No
  Sender: ROCHE
  Company Number: US-ROCHE-10000082945

PATIENT
  Age: 55 Year
  Sex: Female
  Weight: 81.64 kg

DRUGS (9)
  1. OCREVUS [Suspect]
     Active Substance: OCRELIZUMAB
     Indication: Relapsing-remitting multiple sclerosis
     Dosage: ON AN UNKNOWN DATE IN NOV-2021 AND HAD HER FIRST 300 MG HALF-DOSE INFUSION AND THEN HAD HER 2ND 300
     Route: 042
     Dates: start: 202111, end: 202112
  2. OCREVUS [Suspect]
     Active Substance: OCRELIZUMAB
     Route: 042
     Dates: start: 20220711
  3. AMLODIPINE [Concomitant]
     Active Substance: AMLODIPINE BESYLATE
     Indication: Hypertension
     Dosage: STARTED PROBABLY 10 YEARS AGO.
     Route: 048
  4. BACLOFEN [Concomitant]
     Active Substance: BACLOFEN
     Indication: Muscle spasticity
     Dosage: STARTED ABOUT 18 MONTHS AGO.
     Route: 048
  5. TRAZODONE [Concomitant]
     Active Substance: TRAZODONE HYDROCHLORIDE
     Dosage: STARTED ABOUT 6 YEARS AGO. TAKES IN THE EVENING.
     Route: 048
  6. XANAX [Concomitant]
     Active Substance: ALPRAZOLAM
     Indication: Anxiety
     Dosage: TAKES AS NEEDED.
     Route: 048
     Dates: start: 2014
  7. GABAPENTIN [Concomitant]
     Active Substance: GABAPENTIN
     Indication: Neuralgia
     Dosage: TAKES IN EVENING STARTED NOT QUITE  A YEAR AGO, MAYBE 9 MONTHS
     Route: 048
  8. LINZESS [Concomitant]
     Active Substance: LINACLOTIDE
     Indication: Constipation
     Dosage: STARTED 2 YEARS AGO,
     Route: 048
  9. MODAFINIL [Concomitant]
     Active Substance: MODAFINIL
     Indication: Fatigue
     Dosage: STARTED PROBABLY 2 YEARS AGO. TAKES ONLY 3 TO 4 DAYS DURING THE WEEK, TOTAL, WHEN SHE GOES TO WORK.
     Route: 048

REACTIONS (7)
  - Vertigo [Not Recovered/Not Resolved]
  - Gait disturbance [Not Recovered/Not Resolved]
  - Neuralgia [Not Recovered/Not Resolved]
  - Sleep disorder [Not Recovered/Not Resolved]
  - Fatigue [Not Recovered/Not Resolved]
  - Brain fog [Not Recovered/Not Resolved]
  - COVID-19 [Unknown]
